FAERS Safety Report 5892441-0 (Version None)
Quarter: 2008Q3

REPORT INFORMATION
  Report Type: 
  Country: None (occurrence: None)
  Receive Date: 20080923
  Receipt Date: 20080922
  Transmission Date: 20090109
  Serious: Yes (Hospitalization)
  Sender: FDA-Public Use
  Company Number: FR-BRISTOL-MYERS SQUIBB COMPANY-14244727

PATIENT
  Age: 48 Year
  Sex: Female

DRUGS (4)
  1. ORENCIA [Suspect]
     Indication: RHEUMATOID ARTHRITIS
     Dosage: ABATACEPT WAS REINTRODUCED AT 1 G WITH CORTANCYL.
     Dates: start: 20080210
  2. METHOTREXATE [Suspect]
     Indication: RHEUMATOID ARTHRITIS
  3. PHYSIOTENS [Concomitant]
     Indication: HYPERTENSION
  4. COAPROVEL [Concomitant]
     Indication: HYPERTENSION

REACTIONS (1)
  - TRANSAMINASES INCREASED [None]
